FAERS Safety Report 24444961 (Version 2)
Quarter: 2024Q4

REPORT INFORMATION
  Report Type: Report from Study
  Country: ZA (occurrence: ZA)
  Receive Date: 20241016
  Receipt Date: 20241017
  Transmission Date: 20250114
  Serious: No
  Sender: ROCHE
  Company Number: ZA-ROCHE-3015222

PATIENT
  Age: 74 Year
  Sex: Female

DRUGS (4)
  1. MABTHERA [Suspect]
     Active Substance: RITUXIMAB
     Indication: Rheumatoid arthritis
     Dosage: 1000MG IVI X 2 DOSES
     Route: 041
     Dates: start: 20160413
  2. MABTHERA [Suspect]
     Active Substance: RITUXIMAB
     Dosage: 500 MG IVI TWO WEEKS APART
     Route: 041
  3. MABTHERA [Suspect]
     Active Substance: RITUXIMAB
     Route: 041
  4. RITUXIMAB [Suspect]
     Active Substance: RITUXIMAB
     Indication: Product used for unknown indication
     Dosage: 1, 14 DAYS APART EVERY 6 MONTHS
     Route: 041

REACTIONS (5)
  - C-reactive protein increased [Unknown]
  - Haemoglobin decreased [Unknown]
  - Platelet count increased [Unknown]
  - Aspartate aminotransferase increased [Unknown]
  - Off label use [Unknown]

NARRATIVE: CASE EVENT DATE: 20220831
